FAERS Safety Report 7308723-1 (Version None)
Quarter: 2011Q1

REPORT INFORMATION
  Report Type: 
  Country: None (occurrence: None)
  Receive Date: 20110223
  Receipt Date: 20110211
  Transmission Date: 20110831
  Serious: Yes (Other)
  Sender: FDA-Public Use
  Company Number: PHHO2011AU02651

PATIENT
  Sex: Male
  Weight: 95 kg

DRUGS (4)
  1. PHYSIOTENS ^GIULINI^ [Concomitant]
  2. CO-DIOVAN [Suspect]
     Indication: HYPERTENSION
     Dosage: 160 / 25 MG
     Route: 048
     Dates: start: 20110121, end: 20110204
  3. MONOPRIL [Concomitant]
  4. VALSARTAN [Suspect]
     Indication: HYPERTENSION
     Dosage: 80 MG, UNK
     Route: 048

REACTIONS (10)
  - SWELLING [None]
  - BLOOD PRESSURE INADEQUATELY CONTROLLED [None]
  - ERYTHEMA [None]
  - BLISTER [None]
  - RASH MACULO-PAPULAR [None]
  - URTICARIA [None]
  - PRURITUS [None]
  - SKIN LESION [None]
  - ARTHRALGIA [None]
  - PURPURA [None]
